FAERS Safety Report 14655404 (Version 2)
Quarter: 2018Q3

REPORT INFORMATION
  Report Type: Report from Study
  Country: US (occurrence: US)
  Receive Date: 20180319
  Receipt Date: 20180806
  Transmission Date: 20181010
  Serious: Yes (Hospitalization, Other)
  Sender: FDA-Public Use
  Company Number: US-SA-2018SA045065

PATIENT
  Sex: Female

DRUGS (2)
  1. ALEMTUZUMAB [Suspect]
     Active Substance: ALEMTUZUMAB
     Dosage: 12 MG,QD
     Route: 041
     Dates: start: 20180213
  2. ALEMTUZUMAB [Suspect]
     Active Substance: ALEMTUZUMAB
     Dosage: 12 MG,QD
     Route: 041
     Dates: start: 20180212, end: 20180213

REACTIONS (13)
  - Pulmonary embolism [Not Recovered/Not Resolved]
  - Hospitalisation [Recovered/Resolved]
  - Headache [Unknown]
  - Haemorrhage [Recovered/Resolved]
  - Pharyngeal oedema [Unknown]
  - Feeling hot [Unknown]
  - Stress [Unknown]
  - Anaemia [Not Recovered/Not Resolved]
  - Serum sickness [Recovered/Resolved]
  - Alopecia [Not Recovered/Not Resolved]
  - Memory impairment [Not Recovered/Not Resolved]
  - Hypersensitivity [Recovered/Resolved]
  - Bladder cyst [Recovered/Resolved]

NARRATIVE: CASE EVENT DATE: 2018
